FAERS Safety Report 23253026 (Version 4)
Quarter: 2024Q2

REPORT INFORMATION
  Report Type: Report from Study
  Country: US (occurrence: US)
  Receive Date: 20231201
  Receipt Date: 20240604
  Transmission Date: 20240716
  Serious: Yes (Hospitalization, Other)
  Sender: FDA-Public Use
  Company Number: US-002147023-NVSC2023US017047

PATIENT
  Age: 34 Year
  Sex: Male
  Weight: 77.098 kg

DRUGS (8)
  1. TREPROSTINIL [Suspect]
     Active Substance: TREPROSTINIL
     Dosage: 85 NG/KG/MIN, CONT
     Route: 058
     Dates: start: 20220419
  2. TREPROSTINIL [Suspect]
     Active Substance: TREPROSTINIL
     Dosage: 92 NG/KG/MIN, CONT
     Route: 058
     Dates: start: 20220419
  3. TREPROSTINIL [Suspect]
     Active Substance: TREPROSTINIL
     Indication: Pulmonary arterial hypertension
     Dosage: 88 UNK, CONT (NG/ KG/  MIN)
     Route: 058
     Dates: start: 20220419
  4. TREPROSTINIL [Suspect]
     Active Substance: TREPROSTINIL
     Dosage: 92 UNK, CONT (NG/ KG/ MIN)
     Route: 058
  5. TREPROSTINIL [Suspect]
     Active Substance: TREPROSTINIL
     Dosage: 10 MG/ML
     Route: 065
     Dates: start: 20220419
  6. OPSUMIT [Concomitant]
     Active Substance: MACITENTAN
     Indication: Product used for unknown indication
     Dosage: UNK
     Route: 065
  7. REMODULIN [Concomitant]
     Active Substance: TREPROSTINIL
     Indication: Product used for unknown indication
     Route: 065
  8. TADALAFIL [Concomitant]
     Active Substance: TADALAFIL
     Indication: Product used for unknown indication
     Dosage: UNK
     Route: 065

REACTIONS (6)
  - Hospitalisation [Unknown]
  - Pulmonary hypertension [Unknown]
  - Catheter site bruise [Unknown]
  - Infection [Unknown]
  - Incorrect dose administered by device [Unknown]
  - Illness [Unknown]

NARRATIVE: CASE EVENT DATE: 20231128
